FAERS Safety Report 8810688 (Version 1)
Quarter: 2012Q4

REPORT INFORMATION
  Report Type: Spontaneous
  Country: GB (occurrence: None)
  Receive Date: 20120920
  Receipt Date: 20120920
  Transmission Date: 20130627
  Serious: Yes (Death, Other)
  Sender: FDA-Public Use
  Company Number: 2012MA010977

PATIENT
  Sex: Male
  Weight: 2.69 kg

DRUGS (3)
  1. FEVERALL [Suspect]
     Route: 064
  2. AMYLOBARBITONE [Concomitant]
  3. ETHANOL [Concomitant]

REACTIONS (2)
  - Maternal exposure timing unspecified [None]
  - Drug level increased [None]
